FAERS Safety Report 12473595 (Version 1)
Quarter: 2016Q2

REPORT INFORMATION
  Report Type: Report from Study
  Country: US (occurrence: US)
  Receive Date: 20160616
  Receipt Date: 20160616
  Transmission Date: 20160815
  Serious: Yes (Death, Hospitalization)
  Sender: FDA-Public Use
  Company Number: US-ROCHE-1774372

PATIENT
  Age: 76 Year
  Sex: Male
  Weight: 77.66 kg

DRUGS (1)
  1. ATEZOLIZUMAB [Suspect]
     Active Substance: ATEZOLIZUMAB
     Indication: BLADDER CANCER
     Dosage: LAST DOSE PRIOR TO SAE: 16/MAR/2016
     Route: 042

REACTIONS (2)
  - Acute respiratory failure [Fatal]
  - Renal failure [Unknown]

NARRATIVE: CASE EVENT DATE: 20160503
